FAERS Safety Report 4894436-2 (Version None)
Quarter: 2006Q1

REPORT INFORMATION
  Report Type: 
  Country: None (occurrence: None)
  Receive Date: 20060127
  Receipt Date: 20060116
  Transmission Date: 20060701
  Serious: Yes (Hospitalization)
  Sender: FDA-Public Use
  Company Number: FR-ROCHE-432316

PATIENT
  Age: 36 Year
  Sex: Male
  Weight: 68.5 kg

DRUGS (11)
  1. DACLIZUMAB [Suspect]
     Route: 042
     Dates: start: 20050822, end: 20050822
  2. DACLIZUMAB [Suspect]
     Route: 042
     Dates: start: 20050905, end: 20050905
  3. MYCOPHENOLATE MOFETIL [Suspect]
     Route: 048
     Dates: start: 20050822, end: 20051211
  4. MYCOPHENOLATE MOFETIL [Suspect]
     Route: 048
     Dates: start: 20051223
  5. CYCLOSPORINE [Suspect]
     Route: 048
     Dates: start: 20050823, end: 20051211
  6. CYCLOSPORINE [Suspect]
     Route: 048
     Dates: start: 20051212
  7. CORTICOSTEROIDS [Suspect]
     Route: 048
     Dates: start: 20050823
  8. NIFEDIPINE [Concomitant]
     Dates: start: 20050905
  9. MOPRAL [Concomitant]
     Dates: start: 20050822, end: 20051212
  10. BACTRIM [Concomitant]
     Dates: start: 20050826, end: 20051212
  11. ZELITREX [Concomitant]
     Dates: start: 20050905, end: 20051212

REACTIONS (1)
  - AGRANULOCYTOSIS [None]
